FAERS Safety Report 5166180-8 (Version None)
Quarter: 2006Q4

REPORT INFORMATION
  Report Type: 
  Country: None (occurrence: None)
  Receive Date: 20061129
  Receipt Date: 20061117
  Transmission Date: 20070319
  Serious: Yes (Other)
  Sender: FDA-Public Use
  Company Number: 2006142900

PATIENT
  Age: 25 Year
  Sex: Female

DRUGS (2)
  1. GEODON [Suspect]
     Dosage: 3 WEEKS AGO
  2. SEROQUEL [Concomitant]

REACTIONS (1)
  - ORGAN FAILURE [None]
